FAERS Safety Report 6700500-5 (Version None)
Quarter: 2010Q2

REPORT INFORMATION
  Report Type: 
  Country: None (occurrence: None)
  Receive Date: 20100428
  Receipt Date: 20100423
  Transmission Date: 20101027
  Serious: Yes (Hospitalization)
  Sender: FDA-Public Use
  Company Number: A0790209A

PATIENT
  Age: 61 Year
  Sex: Female
  Weight: 116 kg

DRUGS (6)
  1. AVANDIA [Suspect]
     Dosage: 4MG PER DAY
     Route: 048
     Dates: start: 20040601, end: 20070601
  2. AVANDAMET [Suspect]
     Route: 048
     Dates: start: 20050101
  3. SYNTHROID [Concomitant]
  4. ALTACE [Concomitant]
  5. TOPAMAX [Concomitant]
  6. TAGAMET [Concomitant]

REACTIONS (1)
  - MYOCARDIAL INFARCTION [None]
